FAERS Safety Report 6022088-7 (Version None)
Quarter: 2008Q4

REPORT INFORMATION
  Report Type: 
  Country: None (occurrence: None)
  Receive Date: 20081229
  Receipt Date: 20081217
  Transmission Date: 20090506
  Serious: Yes (Other)
  Sender: FDA-Public Use
  Company Number: BR-PFIZER INC-2008095711

PATIENT

DRUGS (4)
  1. FRONTAL [Suspect]
     Indication: FEELING OF RELAXATION
     Dosage: UNK
     Route: 048
     Dates: start: 20081001, end: 20081201
  2. METFORMIN HYDROCHLORIDE [Interacting]
     Indication: DIABETES MELLITUS
  3. ENALAPRIL [Concomitant]
     Dosage: UNK
  4. ANAFRANIL [Concomitant]
     Dosage: UNK

REACTIONS (8)
  - ANOREXIA [None]
  - DRUG INTERACTION [None]
  - FALL [None]
  - HYPOGLYCAEMIA [None]
  - PANIC DISORDER [None]
  - SYNCOPE [None]
  - TINNITUS [None]
  - VISION BLURRED [None]
